FAERS Safety Report 7148343-5 (Version None)
Quarter: 2010Q4

REPORT INFORMATION
  Report Type: 
  Country: None (occurrence: None)
  Receive Date: 20101209
  Receipt Date: 20101202
  Transmission Date: 20110411
  Serious: Yes (Other)
  Sender: FDA-Public Use
  Company Number: IT-NOVOPROD-319497

PATIENT
  Sex: Female

DRUGS (2)
  1. NOVORAPID FLEXPEN [Suspect]
     Indication: DIABETES MELLITUS
     Dosage: 3 U, QD
     Route: 058
     Dates: start: 20060411
  2. EUTIROX [Concomitant]
     Dosage: 75 MG, QD

REACTIONS (1)
  - DIARRHOEA [None]
